FAERS Safety Report 9968223 (Version 1)
Quarter: 2014Q1

REPORT INFORMATION
  Report Type: Report from Study
  Country: US (occurrence: US)
  Receive Date: 20140306
  Receipt Date: 20140306
  Transmission Date: 20141002
  Serious: No
  Sender: FDA-Public Use
  Company Number: US-ABBVIE-13P-163-1140394-00

PATIENT
  Age: 46 Year
  Sex: Female

DRUGS (10)
  1. HUMIRA [Suspect]
     Indication: RHEUMATOID ARTHRITIS
     Dates: start: 201107
  2. PREDNISONE [Concomitant]
     Indication: SJOGREN^S SYNDROME
     Dosage: 10MG DAILY (TAPER DOWN 1MG EACH WEEK)
  3. DICLOFENAC [Concomitant]
     Indication: ARTHRALGIA
  4. DICLOFENAC [Concomitant]
     Indication: INFLAMMATION
  5. GENERIC EVOXAC [Concomitant]
     Indication: SALIVARY GLAND DISORDER
     Dosage: AT LEAST DAILY AND UP TO THREE TIMES A DAY
  6. SYNTHROID [Concomitant]
     Indication: HYPOTHYROIDISM
     Dosage: 0.1MG DAILY
  7. FISH OIL [Concomitant]
     Indication: PRODUCT USED FOR UNKNOWN INDICATION
     Dosage: DAILY
  8. CALCIUM [Concomitant]
     Indication: PRODUCT USED FOR UNKNOWN INDICATION
     Dosage: DAILY
  9. MULTIVITAMIN [Concomitant]
     Indication: PRODUCT USED FOR UNKNOWN INDICATION
     Dosage: DAILY
  10. ESTROGENS [Concomitant]
     Indication: MENOPAUSE
     Dosage: DAILY

REACTIONS (4)
  - Inflammation [Not Recovered/Not Resolved]
  - Fungal infection [Not Recovered/Not Resolved]
  - Rash [Not Recovered/Not Resolved]
  - Erythema [Not Recovered/Not Resolved]
